FAERS Safety Report 19909292 (Version 1)
Quarter: 2021Q4

REPORT INFORMATION
  Report Type: Spontaneous
  Country: US (occurrence: US)
  Receive Date: 20211001
  Receipt Date: 20211001
  Transmission Date: 20220303
  Serious: No
  Sender: FDA-Public Use
  Company Number: US-AMARIN PHARMA, INC.-2021AMR000152

PATIENT
  Age: 31 Year
  Sex: Female
  Weight: 54.48 kg

DRUGS (1)
  1. VASCEPA [Suspect]
     Active Substance: ICOSAPENT ETHYL
     Indication: Familial risk factor
     Route: 048
     Dates: start: 2020

REACTIONS (4)
  - Eructation [Not Recovered/Not Resolved]
  - Off label use [Not Recovered/Not Resolved]
  - Product odour abnormal [Unknown]
  - Product colour issue [Unknown]

NARRATIVE: CASE EVENT DATE: 20200101
